FAERS Safety Report 20386150 (Version 1)
Quarter: 2022Q1

REPORT INFORMATION
  Report Type: Spontaneous
  Country: CA (occurrence: CA)
  Receive Date: 20220127
  Receipt Date: 20220127
  Transmission Date: 20220423
  Serious: Yes (Other)
  Sender: FDA-Public Use
  Company Number: CA-NOVARTISPH-NVSC2022CA013064

PATIENT
  Age: 14 Year
  Sex: Male
  Weight: 86 kg

DRUGS (6)
  1. ETANERCEPT [Suspect]
     Active Substance: ETANERCEPT
     Indication: Juvenile idiopathic arthritis
     Dosage: 50.0 MG, QW (1 EVERY 1 WEEKS)
     Route: 058
  2. ADALIMUMAB [Suspect]
     Active Substance: ADALIMUMAB
     Indication: Product used for unknown indication
     Dosage: 40.0 MG, QW (1 EVERY 1 WEEKS)
     Route: 058
  3. METHOTREXATE [Suspect]
     Active Substance: METHOTREXATE
     Indication: Juvenile idiopathic arthritis
     Dosage: 25.0 MG, QW (1 EVERY 1 WEEKS)
     Route: 058
  4. ORENCIA [Suspect]
     Active Substance: ABATACEPT
     Indication: Product used for unknown indication
     Dosage: 750.0 MG, Q4W (1 EVERY 4 WEEKS)
     Route: 065
  5. TOCILIZUMAB [Suspect]
     Active Substance: TOCILIZUMAB
     Indication: Product used for unknown indication
     Dosage: 540.0 NG
     Route: 042
  6. INDOMETHACIN [Concomitant]
     Active Substance: INDOMETHACIN
     Indication: Product used for unknown indication
     Dosage: 50.0 MG (3 EVERY 1 DAYS)
     Route: 065

REACTIONS (5)
  - Drug ineffective [Unknown]
  - Hepatitis B virus test positive [Unknown]
  - Infusion related reaction [Unknown]
  - Loss of personal independence in daily activities [Unknown]
  - Treatment failure [Unknown]
